FAERS Safety Report 7383677-0 (Version None)
Quarter: 2011Q1

REPORT INFORMATION
  Report Type: 
  Country: None (occurrence: None)
  Receive Date: 20110330
  Receipt Date: 20110307
  Transmission Date: 20110831
  Serious: No
  Sender: FDA-Public Use
  Company Number: US-BAYER-2011-022840

PATIENT

DRUGS (1)
  1. KOGENATE FS [Suspect]

REACTIONS (1)
  - ADVERSE EVENT [None]
